FAERS Safety Report 13059281 (Version 2)
Quarter: 2017Q1

REPORT INFORMATION
  Report Type: Report from Study
  Country: BR (occurrence: BR)
  Receive Date: 20161223
  Receipt Date: 20170103
  Transmission Date: 20170428
  Serious: Yes (Other)
  Sender: FDA-Public Use
  Company Number: PHHY2016BR175911

PATIENT
  Sex: Male
  Weight: 73 kg

DRUGS (1)
  1. EXELON PATCH [Suspect]
     Active Substance: RIVASTIGMINE
     Indication: DEMENTIA ALZHEIMER^S TYPE
     Dosage: 4.6 MG, QD (PATCH 5 (CM2))
     Route: 062
     Dates: start: 20161027, end: 20161205

REACTIONS (13)
  - Application site mass [Unknown]
  - Application site pain [Recovering/Resolving]
  - Depersonalisation/derealisation disorder [Unknown]
  - Abnormal behaviour [Unknown]
  - Psychomotor hyperactivity [Unknown]
  - Confusional state [Unknown]
  - Malaise [Unknown]
  - Memory impairment [Unknown]
  - Feeling abnormal [Unknown]
  - Application site swelling [Unknown]
  - Speech disorder [Unknown]
  - Dementia Alzheimer^s type [Recovering/Resolving]
  - Dyskinesia [Unknown]
